FAERS Safety Report 5254320-1 (Version None)
Quarter: 2007Q1

REPORT INFORMATION
  Report Type: 
  Country: None (occurrence: None)
  Receive Date: 20070302
  Receipt Date: 20070223
  Transmission Date: 20070707
  Serious: Yes (Disabling)
  Sender: FDA-Public Use
  Company Number: HQWYE684123FEB07

PATIENT
  Sex: Female

DRUGS (11)
  1. CORDARONE [Suspect]
     Indication: ATRIAL FIBRILLATION
     Route: 048
     Dates: start: 20030601, end: 20061201
  2. CORDARONE [Suspect]
     Route: 048
     Dates: start: 20061201
  3. NEWACE [Suspect]
     Indication: CARDIAC FAILURE
     Dates: start: 20030201
  4. NEWACE [Suspect]
     Dosage: UNSPECIFIED
  5. CRESTOR [Concomitant]
     Dosage: 10  MG, FREQUENCY UNSPECIFIED
     Dates: start: 20040101
  6. SPIRONOLACTONE [Suspect]
     Indication: CARDIAC FAILURE
     Dates: start: 20041201
  7. SPIRONOLACTONE [Suspect]
     Dosage: UNSPECIFIED
  8. ACENOCOUMAROL [Concomitant]
     Dosage: 1 MG, FREQUENCY UNSPECIFIED
     Dates: start: 20030201
  9. SELOKEEN ZOC [Suspect]
     Indication: CARDIAC FAILURE
     Dates: start: 20030201
  10. BUMETANIDE [Suspect]
     Indication: CARDIAC FAILURE
     Dates: start: 20030201
  11. BUMETANIDE [Suspect]
     Dosage: UNSPECIFIED

REACTIONS (6)
  - DRY MOUTH [None]
  - HEADACHE [None]
  - MEMORY IMPAIRMENT [None]
  - PHOTOPHOBIA [None]
  - PHOTOSENSITIVITY REACTION [None]
  - SKIN DISCOLOURATION [None]
